FAERS Safety Report 22082404 (Version 1)
Quarter: 2023Q1

REPORT INFORMATION
  Report Type: Spontaneous
  Country: CZ (occurrence: CZ)
  Receive Date: 20230310
  Receipt Date: 20230310
  Transmission Date: 20230418
  Serious: Yes (Other)
  Sender: FDA-Public Use
  Company Number: CZ-AMGEN-CZESP2023038201

PATIENT
  Age: 58 Year
  Sex: Male

DRUGS (4)
  1. ADALIMUMAB [Suspect]
     Active Substance: ADALIMUMAB
     Indication: Psoriatic arthropathy
     Dosage: UNK
     Route: 065
     Dates: start: 201909
  2. METHOTREXATE [Concomitant]
     Active Substance: METHOTREXATE
     Indication: Psoriatic arthropathy
     Dosage: 15 MILLIGRAM, QWK
  3. METHOTREXATE [Concomitant]
     Active Substance: METHOTREXATE
     Dosage: REDUCED DOSE
     Dates: start: 201909
  4. NIMESULIDE [Concomitant]
     Active Substance: NIMESULIDE
     Indication: Psoriatic arthropathy
     Dosage: 100 MILLIGRAM, QD

REACTIONS (2)
  - Psoriatic arthropathy [Recovered/Resolved]
  - Psoriasis [Recovered/Resolved]
